FAERS Safety Report 10069941 (Version 1)
Quarter: 2014Q2

REPORT INFORMATION
  Report Type: Spontaneous
  Country: DK (occurrence: None)
  Receive Date: 20140408
  Receipt Date: 20140408
  Transmission Date: 20141212
  Serious: Yes (Other)
  Sender: FDA-Public Use
  Company Number: 2014P1002760

PATIENT
  Age: 62 Year
  Sex: Female

DRUGS (1)
  1. PANTOPRAZOLE [Suspect]

REACTIONS (1)
  - Subacute cutaneous lupus erythematosus [None]
